FAERS Safety Report 20988458 (Version 1)
Quarter: 2022Q2

REPORT INFORMATION
  Report Type: Spontaneous
  Country: HU (occurrence: HU)
  Receive Date: 20220621
  Receipt Date: 20220621
  Transmission Date: 20220721
  Serious: Yes (Other)
  Sender: FDA-Public Use
  Company Number: HU-ELI_LILLY_AND_COMPANY-HU202206006108

PATIENT
  Age: 77 Year
  Sex: Female

DRUGS (3)
  1. ABEMACICLIB [Suspect]
     Active Substance: ABEMACICLIB
     Indication: Invasive ductal breast carcinoma
     Dosage: 150 MG, BID
     Route: 065
     Dates: start: 20200723, end: 20210603
  2. UNSPECIFIED INGREDIENT [Concomitant]
     Active Substance: UNSPECIFIED INGREDIENT
     Indication: Anticoagulant therapy
     Dosage: 0.6 ML, DAILY
     Route: 058
  3. LETROZOLE [Concomitant]
     Active Substance: LETROZOLE
     Indication: Invasive ductal breast carcinoma
     Dosage: 1 DOSAGE FORM, DAILY
     Dates: start: 20200723

REACTIONS (9)
  - Pericardial effusion [Unknown]
  - Arrhythmia [Unknown]
  - Tachycardia [Unknown]
  - Anaemia vitamin B12 deficiency [Recovered/Resolved]
  - Cough [Unknown]
  - Diarrhoea [Unknown]
  - White blood cell count decreased [Unknown]
  - Granulocyte count decreased [Unknown]
  - Pneumonia [Unknown]

NARRATIVE: CASE EVENT DATE: 20200806
